FAERS Safety Report 8115954-X (Version None)
Quarter: 2012Q1

REPORT INFORMATION
  Report Type: 
  Country: None (occurrence: None)
  Receive Date: 20120206
  Receipt Date: 20120125
  Transmission Date: 20120608
  Serious: Yes (Hospitalization)
  Sender: FDA-Public Use
  Company Number: US-BAYER-2011-123696

PATIENT
  Age: 78 Year
  Sex: Female

DRUGS (4)
  1. CLOPIDOGREL [Interacting]
     Indication: ILL-DEFINED DISORDER
  2. ACETYLSALICYLIC ACID SRT [Suspect]
     Indication: ILL-DEFINED DISORDER
     Dosage: BABY ASPIRIN
  3. ACETYLSALICYLIC ACID SRT [Interacting]
  4. RIVAROXABAN [Interacting]
     Indication: ATRIAL FIBRILLATION
     Dosage: 15 MG, UNK
     Route: 048
     Dates: end: 20111219

REACTIONS (2)
  - PHARYNGEAL HAEMORRHAGE [None]
  - HAEMORRHAGE [None]
